FAERS Safety Report 5178806-3 (Version None)
Quarter: 2006Q4

REPORT INFORMATION
  Report Type: 
  Country: None (occurrence: None)
  Receive Date: 20061208
  Receipt Date: 20061127
  Transmission Date: 20070319
  Serious: Yes (Hospitalization)
  Sender: FDA-Public Use
  Company Number: 2006120422

PATIENT
  Age: 21 Year
  Sex: Male

DRUGS (3)
  1. SOLU-MEDROL [Suspect]
     Indication: RESPIRATORY DISTRESS
     Dosage: 250 MG (1 IN 1 D), INTRAVENOUS
     Route: 042
     Dates: start: 20060924, end: 20060924
  2. AMINOPHYLLINE [Concomitant]
  3. SULTANOL (SALBUTAMOL) [Concomitant]

REACTIONS (2)
  - ASTHMA [None]
  - CONDITION AGGRAVATED [None]
